FAERS Safety Report 18496782 (Version 2)
Quarter: 2021Q3

REPORT INFORMATION
  Report Type: Spontaneous
  Country: US (occurrence: US)
  Receive Date: 20201112
  Receipt Date: 20210729
  Transmission Date: 20211014
  Serious: No
  Sender: FDA-Public Use
  Company Number: US-PFIZER INC-2020443753

PATIENT
  Age: 85 Year
  Sex: Female

DRUGS (3)
  1. XELJANZ [Suspect]
     Active Substance: TOFACITINIB CITRATE
  2. METHOTREXATE SODIUM. [Suspect]
     Active Substance: METHOTREXATE SODIUM
     Dosage: UNK
  3. ENBREL [Suspect]
     Active Substance: ETANERCEPT
     Dosage: UNK

REACTIONS (6)
  - Drug hypersensitivity [Unknown]
  - Peripheral swelling [Unknown]
  - Swelling [Unknown]
  - Impaired healing [Not Recovered/Not Resolved]
  - Abdominal distension [Unknown]
  - Limb injury [Not Recovered/Not Resolved]
